FAERS Safety Report 5387358-4 (Version None)
Quarter: 2007Q3

REPORT INFORMATION
  Report Type: 
  Country: None (occurrence: None)
  Receive Date: 20070711
  Receipt Date: 20070706
  Transmission Date: 20080115
  Serious: Yes (Other)
  Sender: FDA-Public Use
  Company Number: TCI2007A02762

PATIENT
  Age: 72 Year
  Sex: Male

DRUGS (6)
  1. LEUPROLIDE ACETATE [Suspect]
     Indication: PROSTATE CANCER STAGE III
     Dosage: 11.25 MG (11.25 MG,1 IN 12 WK),SUBCUTANEOUS
     Route: 058
     Dates: start: 20061004
  2. CASODEX [Concomitant]
  3. ATELEC (CILNIDIPINE) (TABLETS) [Concomitant]
  4. CARVACRON (TRICHLORMETHIAZIDE) (TABLETS) [Concomitant]
  5. OLMETEC (OLMESARTAN MEDOXOMIL) (TABLETS) [Concomitant]
  6. PURSENNID (SENNA ALEXANDRINA LEAF) (TABLETS) [Concomitant]

REACTIONS (1)
  - CATARACT [None]
